FAERS Safety Report 9512221 (Version 2)
Quarter: 2013Q3

REPORT INFORMATION
  Report Type: Spontaneous
  Country: AR (occurrence: AR)
  Receive Date: 20130910
  Receipt Date: 20130917
  Transmission Date: 20140515
  Serious: Yes (Hospitalization, Other)
  Sender: FDA-Public Use
  Company Number: PHHY2013AR099344

PATIENT
  Age: 52 Year
  Sex: Female

DRUGS (2)
  1. ACLASTA [Suspect]
     Indication: OSTEOPOROSIS
     Dosage: UNK UKN, UNK
     Route: 042
     Dates: start: 201207
  2. ACLASTA [Suspect]
     Dosage: UNK UKN, UNK
     Route: 042
     Dates: start: 20130808

REACTIONS (5)
  - Thyroiditis subacute [Recovering/Resolving]
  - Pyrexia [Recovering/Resolving]
  - Pain in jaw [Recovering/Resolving]
  - Neck pain [Recovering/Resolving]
  - Red blood cell count increased [Recovering/Resolving]
